FAERS Safety Report 22024015 (Version 4)
Quarter: 2024Q4

REPORT INFORMATION
  Report Type: Spontaneous
  Country: JP (occurrence: JP)
  Receive Date: 20230223
  Receipt Date: 20241123
  Transmission Date: 20250115
  Serious: Yes (Death, Other)
  Sender: UNITED THERAPEUTICS
  Company Number: JP-UNITED THERAPEUTICS-UNT-2022-023156

PATIENT
  Age: 8 Year
  Sex: Male
  Weight: 23 kg

DRUGS (32)
  1. UNITUXIN [Suspect]
     Active Substance: DINUTUXIMAB
     Indication: Neuroblastoma recurrent
     Dosage: 17.5 MG/M2, CYCLICAL (CYCLE 1)
     Route: 041
     Dates: start: 20220808, end: 20220811
  2. UNITUXIN [Suspect]
     Active Substance: DINUTUXIMAB
     Dosage: 17.5 MG/M2, CYCLICAL (CYCLE 2)
     Route: 041
     Dates: start: 20220913, end: 20220916
  3. UNITUXIN [Suspect]
     Active Substance: DINUTUXIMAB
     Dosage: 17.5 MG/M2, CYCLICAL (CYCLE 3)
     Route: 041
     Dates: start: 20221011, end: 20221014
  4. UNITUXIN [Suspect]
     Active Substance: DINUTUXIMAB
     Dosage: 17.5 MG/M2, CYCLICAL (CYCLE 4)
     Route: 041
     Dates: start: 20221114, end: 20221117
  5. UNITUXIN [Suspect]
     Active Substance: DINUTUXIMAB
     Dosage: 17.5 MG/M2, CYCLICAL (CYCLE 5)
     Route: 041
     Dates: start: 20221212, end: 20221215
  6. FILGRASTIM [Suspect]
     Active Substance: FILGRASTIM
     Indication: Neuroblastoma recurrent
     Dosage: 5 ?G/KG, QD (CYCLE 1)
     Dates: start: 20220805, end: 20220807
  7. FILGRASTIM [Suspect]
     Active Substance: FILGRASTIM
     Dosage: 2.5 ?G/KG, QD (CYCLE 1)
     Dates: start: 20220809, end: 20220812
  8. FILGRASTIM [Suspect]
     Active Substance: FILGRASTIM
     Dosage: 2.5 ?G/KG, QD (CYCLE 1)
     Dates: start: 20220815, end: 20220817
  9. FILGRASTIM [Suspect]
     Active Substance: FILGRASTIM
     Dosage: 5 ?G/KG, QD (CYCLE 3)
     Dates: start: 20221008, end: 20221021
  10. FILGRASTIM [Suspect]
     Active Substance: FILGRASTIM
     Dosage: 5 ?G/KG, QD (CYCLE 5)
     Dates: start: 20221209, end: 20221222
  11. TECELEUKIN [Suspect]
     Active Substance: TECELEUKIN
     Indication: Neuroblastoma recurrent
     Dosage: 750,000 UNITS/M2 (CYCLE 1)
     Dates: start: 20220906, end: 20220909
  12. TECELEUKIN [Suspect]
     Active Substance: TECELEUKIN
     Dosage: 1,000,000 UNITS/M2 (CYCLE 2)
     Dates: start: 20220913, end: 20220916
  13. TECELEUKIN [Suspect]
     Active Substance: TECELEUKIN
     Dosage: 750,000 UNITS/M2 (CYCLE 3)
     Dates: start: 20221107, end: 20221110
  14. TECELEUKIN [Suspect]
     Active Substance: TECELEUKIN
     Dosage: 1,000,000 UNITS/M2 (CYCLE 4)
     Dates: start: 20221114, end: 20221117
  15. HYDROXYZINE HYDROCHLORIDE [Concomitant]
     Active Substance: HYDROXYZINE HYDROCHLORIDE
     Indication: Prophylaxis
     Dosage: UNK
     Dates: start: 20220808, end: 20220811
  16. HYDROXYZINE HYDROCHLORIDE [Concomitant]
     Active Substance: HYDROXYZINE HYDROCHLORIDE
     Dosage: UNK
     Dates: start: 20220913, end: 20220916
  17. HYDROXYZINE HYDROCHLORIDE [Concomitant]
     Active Substance: HYDROXYZINE HYDROCHLORIDE
     Dosage: UNK
     Dates: start: 20221011, end: 20221015
  18. HYDROXYZINE HYDROCHLORIDE [Concomitant]
     Active Substance: HYDROXYZINE HYDROCHLORIDE
     Dosage: UNK
     Dates: start: 20221114, end: 20221118
  19. HYDROXYZINE HYDROCHLORIDE [Concomitant]
     Active Substance: HYDROXYZINE HYDROCHLORIDE
     Dosage: UNK
     Dates: start: 20221212, end: 20221216
  20. ACETAMINOPHEN [Concomitant]
     Active Substance: ACETAMINOPHEN
     Indication: Prophylaxis
     Dosage: UNK
     Dates: start: 20220808, end: 20220812
  21. ACETAMINOPHEN [Concomitant]
     Active Substance: ACETAMINOPHEN
     Dosage: UNK
     Dates: start: 20221011, end: 20221015
  22. ACETAMINOPHEN [Concomitant]
     Active Substance: ACETAMINOPHEN
     Dosage: UNK
     Dates: start: 20221114, end: 20221118
  23. ACETAMINOPHEN [Concomitant]
     Active Substance: ACETAMINOPHEN
     Dosage: UNK
     Dates: start: 20221212, end: 20221216
  24. FENTANYL [Concomitant]
     Active Substance: FENTANYL
     Indication: Prophylaxis
     Dosage: UNK
     Dates: start: 20220808, end: 20220812
  25. FENTANYL [Concomitant]
     Active Substance: FENTANYL
     Dosage: UNK
     Dates: start: 20221011, end: 20221015
  26. FENTANYL [Concomitant]
     Active Substance: FENTANYL
     Dosage: UNK
     Dates: start: 20221114, end: 20221118
  27. FENTANYL [Concomitant]
     Active Substance: FENTANYL
     Dosage: UNK
     Dates: start: 20221212, end: 20221215
  28. FUROSEMIDE [Concomitant]
     Active Substance: FUROSEMIDE
     Indication: Prophylaxis
     Dosage: UNK
     Dates: start: 20220808, end: 20220811
  29. FUROSEMIDE [Concomitant]
     Active Substance: FUROSEMIDE
     Dosage: UNK
     Dates: start: 20221013, end: 20221013
  30. FUROSEMIDE [Concomitant]
     Active Substance: FUROSEMIDE
     Dosage: UNK
     Dates: start: 20221213, end: 20221215
  31. CEFEPIME HYDROCHLORIDE [Concomitant]
     Active Substance: CEFEPIME HYDROCHLORIDE
     Indication: Prophylaxis
     Dosage: UNK
     Dates: start: 20221114, end: 20221118
  32. VANCOMYCIN [Concomitant]
     Active Substance: VANCOMYCIN
     Indication: Infection
     Dosage: UNK
     Dates: start: 20221114, end: 20221116

REACTIONS (7)
  - Neuroblastoma recurrent [Fatal]
  - Visual acuity reduced [Recovering/Resolving]
  - Leukocytosis [Recovered/Resolved]
  - Diarrhoea [Recovered/Resolved]
  - Pruritus [Recovered/Resolved]
  - Pyrexia [Recovered/Resolved]
  - Pyrexia [Recovered/Resolved]

NARRATIVE: CASE EVENT DATE: 20220801
